FAERS Safety Report 25877179 (Version 2)
Quarter: 2025Q4

REPORT INFORMATION
  Report Type: Spontaneous
  Country: IN (occurrence: IN)
  Receive Date: 20251003
  Receipt Date: 20251021
  Transmission Date: 20260118
  Serious: No
  Sender: NOVARTIS
  Company Number: IN-002147023-NVSC2025IN149694

PATIENT

DRUGS (1)
  1. INCLISIRAN [Suspect]
     Active Substance: INCLISIRAN
     Indication: Hyperlipidaemia
     Dosage: UNK
     Route: 065

REACTIONS (8)
  - Urinary tract infection [Unknown]
  - Myalgia [Unknown]
  - Dyspnoea [Unknown]
  - Fatigue [Unknown]
  - Dizziness [Unknown]
  - Asthenia [Unknown]
  - Arthralgia [Unknown]
  - General physical health deterioration [Unknown]
